FAERS Safety Report 7458904-1 (Version None)
Quarter: 2011Q2

REPORT INFORMATION
  Report Type: 
  Country: None (occurrence: None)
  Receive Date: 20110504
  Receipt Date: 20110425
  Transmission Date: 20111010
  Serious: Yes (Hospitalization)
  Sender: FDA-Public Use
  Company Number: US-ASTRAZENECA-2010SE54403

PATIENT
  Age: 840 Month
  Sex: Female

DRUGS (1)
  1. NEXIUM [Suspect]
     Indication: BARRETT'S OESOPHAGUS
     Route: 048
     Dates: start: 20101001

REACTIONS (2)
  - BONE MARROW TUMOUR CELL INFILTRATION [None]
  - RENAL FAILURE ACUTE [None]
